FAERS Safety Report 9750155 (Version 1)
Quarter: 2013Q4

REPORT INFORMATION
  Report Type: Spontaneous
  Country: GR (occurrence: GR)
  Receive Date: 20131212
  Receipt Date: 20131212
  Transmission Date: 20140711
  Serious: No
  Sender: FDA-Public Use
  Company Number: GR-GILEAD-GR-CVT-100045

PATIENT
  Age: 92 Year
  Sex: Male

DRUGS (4)
  1. RANEXA [Suspect]
     Indication: PRODUCT USED FOR UNKNOWN INDICATION
     Dates: start: 200911, end: 200912
  2. ACETYLSALICYLIC ACID [Concomitant]
  3. FELODIPINE [Concomitant]
  4. ISOSORBIDE MONONITRATE [Concomitant]

REACTIONS (1)
  - Dizziness [Recovered/Resolved]
